FAERS Safety Report 24731682 (Version 1)
Quarter: 2024Q4

REPORT INFORMATION
  Report Type: Spontaneous
  Country: US (occurrence: US)
  Receive Date: 20241213
  Receipt Date: 20241213
  Transmission Date: 20250115
  Serious: Yes (Hospitalization)
  Sender: GLAXOSMITHKLINE
  Company Number: US-GSK-US2024AMR157055

PATIENT
  Age: 9 Year
  Sex: Female

DRUGS (1)
  1. TAFENOQUINE [Suspect]
     Active Substance: TAFENOQUINE
     Indication: Product used for unknown indication
     Dosage: UNK

REACTIONS (2)
  - Blood methaemoglobin present [Unknown]
  - Overdose [Unknown]
